FAERS Safety Report 15358720 (Version 1)
Quarter: 2018Q3

REPORT INFORMATION
  Report Type: Spontaneous
  Country: FR (occurrence: FR)
  Receive Date: 20180906
  Receipt Date: 20180906
  Transmission Date: 20181010
  Serious: Yes (Other)
  Sender: FDA-Public Use
  Company Number: FR-ALSI-201800488

PATIENT
  Age: 96 Year
  Sex: Female
  Weight: 49.8 kg

DRUGS (1)
  1. OXYGEN. [Suspect]
     Active Substance: OXYGEN
     Indication: OXYGEN SATURATION DECREASED

REACTIONS (3)
  - Accidental underdose [Unknown]
  - Product quality issue [Unknown]
  - Oxygen saturation decreased [Unknown]
